FAERS Safety Report 16650131 (Version 1)
Quarter: 2019Q3

REPORT INFORMATION
  Report Type: Report from Study
  Country: BR (occurrence: BR)
  Receive Date: 20190731
  Receipt Date: 20190731
  Transmission Date: 20191004
  Serious: Yes (Death)
  Sender: FDA-Public Use
  Company Number: BR-ROCHE-1305269

PATIENT
  Sex: Female
  Weight: 53 kg

DRUGS (3)
  1. ARAVA [Concomitant]
     Active Substance: LEFLUNOMIDE
     Indication: RHEUMATOID ARTHRITIS
     Route: 065
  2. DIOVAN [Concomitant]
     Active Substance: VALSARTAN
     Indication: HYPERTENSION
     Dosage: IN MORNING
     Route: 065
  3. ACTEMRA [Suspect]
     Active Substance: TOCILIZUMAB
     Indication: RHEUMATOID ARTHRITIS
     Dosage: MOST RECENT INFUSION ON DEC/2013
     Route: 065
     Dates: start: 20130629

REACTIONS (6)
  - Malaise [Recovered/Resolved]
  - Weight decreased [Recovered/Resolved]
  - Systemic lupus erythematosus [Fatal]
  - Rheumatoid arthritis [Fatal]
  - Pain [Not Recovered/Not Resolved]
  - Drug ineffective [Unknown]
